FAERS Safety Report 11944472 (Version 2)
Quarter: 2016Q1

REPORT INFORMATION
  Report Type: Report from Study
  Country: DE (occurrence: DE)
  Receive Date: 20160125
  Receipt Date: 20160309
  Transmission Date: 20160526
  Serious: Yes (Hospitalization)
  Sender: FDA-Public Use
  Company Number: DE-ROCHE-1602101

PATIENT
  Age: 68 Year
  Sex: Male
  Weight: 67 kg

DRUGS (23)
  1. 5-FU [Concomitant]
     Active Substance: FLUOROURACIL
     Dosage: D1-D2
     Route: 041
     Dates: start: 20150826, end: 20151105
  2. HCTZ [Concomitant]
     Active Substance: HYDROCHLOROTHIAZIDE
     Indication: HYPERTENSION
     Route: 048
  3. BEVACIZUMAB [Suspect]
     Active Substance: BEVACIZUMAB
     Dosage: SINGLE DOSE
     Route: 042
     Dates: start: 20150730, end: 20150730
  4. 5-FU [Concomitant]
     Active Substance: FLUOROURACIL
     Route: 040
     Dates: start: 20150808, end: 20151104
  5. EPROSARTAN [Concomitant]
     Active Substance: EPROSARTAN
     Indication: HYPERTENSION
     Route: 048
     Dates: end: 20160121
  6. FOLINIC ACID [Concomitant]
     Active Substance: LEUCOVORIN
     Route: 042
     Dates: start: 20150826, end: 20151104
  7. BEVACIZUMAB [Suspect]
     Active Substance: BEVACIZUMAB
     Indication: COLORECTAL CANCER
     Dosage: SINGLE DOSE
     Route: 042
     Dates: start: 20150602, end: 20150602
  8. PANTOZOL [Concomitant]
     Active Substance: PANTOPRAZOLE SODIUM
     Route: 048
  9. ASPIRIN. [Concomitant]
     Active Substance: ASPIRIN
     Route: 048
  10. OXALIPLATIN. [Concomitant]
     Active Substance: OXALIPLATIN
     Route: 042
     Dates: start: 20150731, end: 20150731
  11. BEVACIZUMAB [Suspect]
     Active Substance: BEVACIZUMAB
     Dosage: SINGLE DOSE
     Route: 042
     Dates: start: 20150616, end: 20150616
  12. BEVACIZUMAB [Suspect]
     Active Substance: BEVACIZUMAB
     Dosage: SINGLE DOSE
     Route: 042
     Dates: start: 20150714, end: 20150714
  13. BEVACIZUMAB [Suspect]
     Active Substance: BEVACIZUMAB
     Dosage: SINGLE DOSE
     Route: 042
     Dates: start: 20151103, end: 20151103
  14. 5-FU [Concomitant]
     Active Substance: FLUOROURACIL
     Route: 040
     Dates: start: 20150731, end: 20150801
  15. 5-FU [Concomitant]
     Active Substance: FLUOROURACIL
     Dosage: D1-D2
     Route: 041
     Dates: start: 20150518, end: 20150716
  16. SIMVASTATIN. [Concomitant]
     Active Substance: SIMVASTATIN
     Route: 048
  17. 5-FU [Concomitant]
     Active Substance: FLUOROURACIL
     Indication: COLORECTAL CANCER
     Route: 040
     Dates: start: 20150518, end: 20150715
  18. 5-FU [Concomitant]
     Active Substance: FLUOROURACIL
     Dosage: D1-D2
     Route: 041
     Dates: start: 20150731, end: 20150802
  19. OXALIPLATIN. [Concomitant]
     Active Substance: OXALIPLATIN
     Indication: COLORECTAL CANCER
     Route: 042
     Dates: start: 20150518, end: 20150714
  20. OXALIPLATIN. [Concomitant]
     Active Substance: OXALIPLATIN
     Route: 042
     Dates: start: 20150826, end: 20151103
  21. FOLINIC ACID [Concomitant]
     Active Substance: LEUCOVORIN
     Indication: COLORECTAL CANCER
     Route: 042
     Dates: start: 20150518, end: 20150715
  22. FOLINIC ACID [Concomitant]
     Active Substance: LEUCOVORIN
     Route: 042
     Dates: start: 20150731, end: 20150801
  23. FORXIGA [Concomitant]
     Active Substance: DAPAGLIFLOZIN
     Indication: DIABETES MELLITUS
     Route: 048

REACTIONS (7)
  - Syncope [Recovering/Resolving]
  - Impaired healing [Recovered/Resolved]
  - Erythema [Recovered/Resolved]
  - Anaemia [Not Recovered/Not Resolved]
  - Leukopenia [Recovered/Resolved]
  - Dehydration [Recovering/Resolving]
  - Chemical peritonitis [Recovering/Resolving]

NARRATIVE: CASE EVENT DATE: 20150627
